FAERS Safety Report 15321649 (Version 1)
Quarter: 2018Q3

REPORT INFORMATION
  Report Type: Spontaneous
  Country: US (occurrence: US)
  Receive Date: 20180827
  Receipt Date: 20180827
  Transmission Date: 20181010
  Serious: Yes (Other)
  Sender: FDA-Public Use
  Company Number: US-TEVA-2018-US-947285

PATIENT
  Sex: Female

DRUGS (1)
  1. COPAXONE [Suspect]
     Active Substance: GLATIRAMER ACETATE
     Dosage: FORM STRENGTH UNKNOWN
     Route: 065
     Dates: start: 2016

REACTIONS (3)
  - Multiple sclerosis relapse [Unknown]
  - Multiple sclerosis [Unknown]
  - Drug ineffective [Unknown]
